FAERS Safety Report 24929636 (Version 4)
Quarter: 2025Q3

REPORT INFORMATION
  Report Type: Spontaneous
  Country: US (occurrence: US)
  Receive Date: 20250205
  Receipt Date: 20250813
  Transmission Date: 20251020
  Serious: Yes (Hospitalization)
  Sender: SANOFI AVENTIS
  Company Number: US-SA-2025SA034790

PATIENT
  Age: 77 Year
  Sex: Male

DRUGS (2)
  1. DUPIXENT [Suspect]
     Active Substance: DUPILUMAB
     Indication: Dermatitis atopic
     Dates: start: 202412, end: 202412
  2. DUPIXENT [Suspect]
     Active Substance: DUPILUMAB
     Dosage: 300 MG, QOW
     Dates: end: 2025

REACTIONS (2)
  - Cardiac disorder [Unknown]
  - Pruritus [Unknown]

NARRATIVE: CASE EVENT DATE: 20250611
